FAERS Safety Report 5732379-2 (Version None)
Quarter: 2008Q2

REPORT INFORMATION
  Report Type: 
  Country: None (occurrence: None)
  Receive Date: 20080508
  Receipt Date: 20080429
  Transmission Date: 20081010
  Serious: Yes (Other)
  Sender: FDA-Public Use
  Company Number: US-PFIZER INC-2008037634

PATIENT
  Sex: Male
  Weight: 99.8 kg

DRUGS (3)
  1. LIPITOR [Suspect]
     Indication: BLOOD CHOLESTEROL INCREASED
     Dates: start: 20050427, end: 20070601
  2. NORVASC [Concomitant]
  3. ATIVAN [Concomitant]

REACTIONS (4)
  - ACTIVITIES OF DAILY LIVING IMPAIRED [None]
  - GROIN PAIN [None]
  - MUSCLE ATROPHY [None]
  - MYALGIA [None]
